FAERS Safety Report 20106063 (Version 7)
Quarter: 2022Q2

REPORT INFORMATION
  Report Type: Report from Study
  Country: AR (occurrence: AR)
  Receive Date: 20211124
  Receipt Date: 20220620
  Transmission Date: 20220721
  Serious: Yes (Hospitalization, Disabling)
  Sender: FDA-Public Use
  Company Number: AR-NOVARTISPH-NVSC2021AR254229

PATIENT
  Age: 54 Year
  Sex: Female

DRUGS (7)
  1. MAYZENT [Suspect]
     Active Substance: SIPONIMOD
     Indication: Multiple sclerosis
     Dosage: 2 MG, QD (THROUGH THE MOUTH)
     Route: 048
     Dates: start: 20211027
  2. MAYZENT [Suspect]
     Active Substance: SIPONIMOD
     Indication: Secondary progressive multiple sclerosis
  3. BACLOFEN [Concomitant]
     Active Substance: BACLOFEN
     Indication: Product used for unknown indication
     Dosage: UNK
     Route: 065
  4. SOLIFENACIN [Concomitant]
     Active Substance: SOLIFENACIN
     Indication: Product used for unknown indication
     Dosage: UNK
     Route: 065
  5. LEVOTHYROXINE [Concomitant]
     Active Substance: LEVOTHYROXINE
     Indication: Product used for unknown indication
     Dosage: 125 MG, UNKNOWN
     Route: 065
  6. LERCANIDIPINE [Concomitant]
     Active Substance: LERCANIDIPINE
     Indication: Product used for unknown indication
     Dosage: 10 MG, UNKNOWN
     Route: 065
  7. EPLERENONE [Concomitant]
     Active Substance: EPLERENONE
     Indication: Product used for unknown indication
     Dosage: 25 MG, UNKNOWN
     Route: 065

REACTIONS (11)
  - Multiple sclerosis relapse [Recovered/Resolved]
  - Mobility decreased [Recovered/Resolved]
  - Paraparesis [Recovered/Resolved]
  - Pain in extremity [Recovering/Resolving]
  - Lower limb fracture [Recovering/Resolving]
  - Abdominal pain upper [Unknown]
  - Abdominal discomfort [Unknown]
  - Accident at home [Recovering/Resolving]
  - Overweight [Unknown]
  - Incontinence [Unknown]
  - Fall [Unknown]

NARRATIVE: CASE EVENT DATE: 20211115
